FAERS Safety Report 7667502-6 (Version None)
Quarter: 2011Q3

REPORT INFORMATION
  Report Type: 
  Country: None (occurrence: None)
  Receive Date: 20110806
  Receipt Date: 20110428
  Transmission Date: 20111222
  Serious: No
  Sender: FDA-Public Use
  Company Number: US-ABBOTT-11P-163-0722196-00

PATIENT
  Sex: Female
  Weight: 116.22 kg

DRUGS (2)
  1. GENEVA [Concomitant]
     Indication: PRODUCT USED FOR UNKNOWN INDICATION
  2. NIASPAN [Suspect]
     Indication: PRODUCT USED FOR UNKNOWN INDICATION
     Dosage: AT BEDTIME
     Dates: end: 20110423

REACTIONS (3)
  - VOMITING [None]
  - COUGH [None]
  - BLOOD GLUCOSE INCREASED [None]
